FAERS Safety Report 5922512-1 (Version None)
Quarter: 2008Q4

REPORT INFORMATION
  Report Type: 
  Country: None (occurrence: None)
  Receive Date: 20081017
  Receipt Date: 20081008
  Transmission Date: 20090506
  Serious: Yes (Other)
  Sender: FDA-Public Use
  Company Number: PHHY2008GR23948

PATIENT
  Sex: Female
  Weight: 100 kg

DRUGS (2)
  1. ZOMETA [Suspect]
  2. DIURETICS [Concomitant]

REACTIONS (1)
  - ISCHAEMIA [None]
